FAERS Safety Report 6849961-1 (Version None)
Quarter: 2010Q3

REPORT INFORMATION
  Report Type: 
  Country: None (occurrence: None)
  Receive Date: 20100716
  Receipt Date: 20071010
  Transmission Date: 20110219
  Serious: No
  Sender: FDA-Public Use
  Company Number: US-PFIZER INC-2007085470

PATIENT
  Sex: Female
  Weight: 51.363 kg

DRUGS (7)
  1. CHANTIX [Suspect]
     Indication: SMOKING CESSATION THERAPY
     Route: 048
     Dates: start: 20071009
  2. COUGH AND COLD PREPARATIONS [Suspect]
     Dates: end: 20071010
  3. LIPITOR [Concomitant]
  4. LEVOXYL [Concomitant]
  5. LOTREL [Concomitant]
  6. FOSAMAX [Concomitant]
  7. ACETYLSALICYLIC ACID [Concomitant]

REACTIONS (1)
  - DIZZINESS [None]
